FAERS Safety Report 6369979-5 (Version None)
Quarter: 2009Q3

REPORT INFORMATION
  Report Type: 
  Country: None (occurrence: None)
  Receive Date: 20090923
  Receipt Date: 20070604
  Transmission Date: 20100115
  Serious: Yes (Hospitalization, Other)
  Sender: FDA-Public Use
  Company Number: US-ASTRAZENECA-2006UW08080

PATIENT
  Age: 19964 Day
  Sex: Female
  Weight: 82.4 kg

DRUGS (27)
  1. SEROQUEL [Suspect]
     Indication: ANXIETY
     Route: 048
     Dates: start: 20010104, end: 20060228
  2. SEROQUEL [Suspect]
     Indication: BIPOLAR I DISORDER
     Route: 048
     Dates: start: 20010104, end: 20060228
  3. SEROQUEL [Suspect]
     Indication: POST-TRAUMATIC STRESS DISORDER
     Route: 048
     Dates: start: 20010104, end: 20060228
  4. SEROQUEL [Suspect]
     Indication: DEPRESSION
     Route: 048
     Dates: start: 20010104, end: 20060228
  5. SEROQUEL [Suspect]
     Route: 048
     Dates: start: 20010104
  6. SEROQUEL [Suspect]
     Route: 048
     Dates: start: 20010104
  7. SEROQUEL [Suspect]
     Route: 048
     Dates: start: 20010104
  8. SEROQUEL [Suspect]
     Route: 048
     Dates: start: 20010104
  9. ZYPREXA [Concomitant]
     Dates: start: 19991201, end: 20001001
  10. ZOLOFT [Concomitant]
     Dates: start: 20000501
  11. ATENOLOL [Concomitant]
     Route: 048
  12. CLAFORAN [Concomitant]
     Route: 065
  13. DIFLUCAN [Concomitant]
     Route: 065
  14. DIPHENHYDRAMINE HCL [Concomitant]
     Route: 065
  15. DOXAZOSIN MESYLATE [Concomitant]
     Route: 048
  16. GLIPIZIDE [Concomitant]
     Dosage: 2.5 TO 5 MG
     Route: 048
  17. GLUCOPHAGE [Concomitant]
     Route: 048
  18. LISINOPRIL [Concomitant]
     Route: 048
  19. LOZOL [Concomitant]
     Route: 048
  20. MEPERIDINE HCL [Concomitant]
     Route: 065
  21. NOVOLIN R [Concomitant]
     Dosage: 0.02X100 UNIT/ML FOUR TIMES A DAY
     Route: 058
  22. PIROXICAM [Concomitant]
     Route: 065
  23. PLENDIL [Concomitant]
     Route: 048
  24. PROMETHAZINE HCL [Concomitant]
     Dosage: STRENGTH 25 MG/ML
     Route: 042
  25. TRICOR [Concomitant]
     Route: 048
  26. VISTARIL [Concomitant]
     Route: 065
  27. ZOCOR [Concomitant]
     Route: 048

REACTIONS (4)
  - DIABETES MELLITUS [None]
  - HEADACHE [None]
  - PANCREATITIS [None]
  - PANCREATITIS ACUTE [None]
